FAERS Safety Report 10311251 (Version 1)
Quarter: 2014Q3

REPORT INFORMATION
  Report Type: Spontaneous
  Country: PL (occurrence: PL)
  Receive Date: 20140717
  Receipt Date: 20140717
  Transmission Date: 20150326
  Serious: Yes (Hospitalization)
  Sender: FDA-Public Use
  Company Number: CHPA2014PL009457

PATIENT
  Age: 13 Year
  Sex: Male

DRUGS (4)
  1. DEXTROMETHORPHAN UNKNOWN [Suspect]
     Active Substance: DEXTROMETHORPHAN
     Dosage: 225 MG, UNK
  2. DEXTROMETHORPHAN UNKNOWN [Suspect]
     Active Substance: DEXTROMETHORPHAN
     Dosage: 150 MG, UNK
  3. BENZODIAZEPINES [Suspect]
     Active Substance: BENZODIAZEPINE
     Dosage: UNK
  4. PIPERAZINE DERIVATIVES [Suspect]
     Active Substance: PIPERAZINE
     Dosage: UNK

REACTIONS (4)
  - Toxicity to various agents [Recovered/Resolved]
  - Pupillary light reflex tests abnormal [Recovered/Resolved]
  - Intentional self-injury [Recovered/Resolved]
  - Somnolence [Recovered/Resolved]
